FAERS Safety Report 12968053 (Version 1)
Quarter: 2016Q4

REPORT INFORMATION
  Report Type: Spontaneous
  Country: US (occurrence: US)
  Receive Date: 20161122
  Receipt Date: 20161122
  Transmission Date: 20170207
  Serious: Yes (Other)
  Sender: FDA-Public Use
  Company Number: None

PATIENT
  Age: 57 Year
  Sex: Female
  Weight: 81 kg

DRUGS (7)
  1. ZOLPDEM TARTRATE [Suspect]
     Active Substance: ZOLPIDEM TARTRATE
     Indication: INSOMNIA
     Dosage: ?          QUANTITY:1 TABLET(S);?
     Route: 048
     Dates: start: 20160316, end: 20161115
  2. BUPROPION. [Concomitant]
     Active Substance: BUPROPION
  3. DULOXETINE. [Concomitant]
     Active Substance: DULOXETINE
  4. BENZTROPINE [Concomitant]
     Active Substance: BENZTROPINE
  5. ARIPIPRAZOLE. [Concomitant]
     Active Substance: ARIPIPRAZOLE
  6. LAMOTRIGINE. [Concomitant]
     Active Substance: LAMOTRIGINE
  7. SIMVASTATIN. [Concomitant]
     Active Substance: SIMVASTATIN

REACTIONS (5)
  - Laceration [None]
  - Intentional self-injury [None]
  - Contusion [None]
  - Hallucination [None]
  - Memory impairment [None]

NARRATIVE: CASE EVENT DATE: 20161115
